FAERS Safety Report 11702425 (Version 1)
Quarter: 2015Q4

REPORT INFORMATION
  Report Type: Report from Study
  Country: US (occurrence: None)
  Receive Date: 20151105
  Receipt Date: 20151105
  Transmission Date: 20160304
  Serious: Yes (Other)
  Sender: FDA-Public Use
  Company Number: ADR-2014-01915

PATIENT
  Age: 40 Year
  Sex: Female

DRUGS (2)
  1. SUFENTA [Suspect]
     Active Substance: SUFENTANIL CITRATE
     Dosage: 205.01 MCG/DAY
  2. COMPOUNDED BACLOFEN INTRATHECAL 164MCG/ML [Suspect]
     Active Substance: BACLOFEN
     Indication: SPINAL PAIN
     Dosage: 100.36 MCG/DAY

REACTIONS (5)
  - Medical device site swelling [None]
  - Medical device site cellulitis [None]
  - Pocket erosion [None]
  - Medical device site erythema [None]
  - Wound dehiscence [None]
